FAERS Safety Report 15300477 (Version 1)
Quarter: 2018Q3

REPORT INFORMATION
  Report Type: Spontaneous
  Country: US (occurrence: US)
  Receive Date: 20180808
  Receipt Date: 20180808
  Transmission Date: 20181010
  Serious: Yes (Hospitalization)
  Sender: FDA-Public Use
  Company Number: None

PATIENT

DRUGS (1)
  1. CLARITIN LIQUI?GELS [Suspect]
     Active Substance: LORATADINE
     Indication: SINUS CONGESTION
     Dosage: ?          QUANTITY:1 CAPSULE(S);?
     Route: 048
     Dates: start: 20180702, end: 20180703

REACTIONS (4)
  - Product use complaint [None]
  - Reaction to excipient [None]
  - Drug hypersensitivity [None]
  - Atrial fibrillation [None]

NARRATIVE: CASE EVENT DATE: 20180704
